FAERS Safety Report 8005570-2 (Version None)
Quarter: 2011Q4

REPORT INFORMATION
  Report Type: 
  Country: None (occurrence: None)
  Receive Date: 20111223
  Receipt Date: 20111220
  Transmission Date: 20120403
  Serious: Yes (Death, Hospitalization, Other)
  Sender: FDA-Public Use
  Company Number: FR-PFIZER INC-2011308228

PATIENT
  Age: 61 Year
  Sex: Male

DRUGS (4)
  1. SUTENT [Suspect]
     Indication: RENAL CANCER
     Dosage: 1 DF, 1X/DAY
     Route: 048
     Dates: start: 20110610, end: 20110905
  2. EFFEXOR [Concomitant]
     Indication: DEPRESSION
     Dosage: 1 DF, 1X/DAY
     Route: 048
  3. DURAGESIC-100 [Concomitant]
     Dosage: 1 DF, EVERY 72HOURS
     Route: 062
  4. MORPHINE SULFATE [Concomitant]
     Indication: PAIN
     Dosage: 30 MG, UNK

REACTIONS (8)
  - CYTOLYTIC HEPATITIS [None]
  - GENERAL PHYSICAL HEALTH DETERIORATION [None]
  - URINARY RETENTION [None]
  - CHOLESTASIS [None]
  - CONSTIPATION [None]
  - PAIN [None]
  - RENAL FAILURE ACUTE [None]
  - ANURIA [None]
